FAERS Safety Report 10313197 (Version 2)
Quarter: 2014Q3

REPORT INFORMATION
  Report Type: Spontaneous
  Country: JP (occurrence: None)
  Receive Date: 20140716
  Receipt Date: 20140728
  Transmission Date: 20150326
  Serious: Yes (Other)
  Sender: FDA-Public Use
  Company Number: 2014-JP-008668

PATIENT
  Age: 16 Year
  Sex: Female

DRUGS (5)
  1. CYCLOPHOSPHAMIDE. [Concomitant]
     Active Substance: CYCLOPHOSPHAMIDE
  2. ASPARAGINASE (UNSPECIFIED) (ASPARAGINASE) INJECTION [Suspect]
     Active Substance: ASPARAGINASE
     Indication: B PRECURSOR TYPE ACUTE LEUKAEMIA
     Dosage: DAYS 15, 17, 19, 22, 24, 26, 29, 31, 33,
  3. DAUNOMYCIN (DAUNORUBICIN HYDROCHLORIDE) [Concomitant]
  4. VINCRISTINE [Concomitant]
     Active Substance: VINCRISTINE
  5. PREDNISOLONE (PREDNISOLONE SODIUM PHOSPHATE) [Concomitant]

REACTIONS (3)
  - Hypersensitivity [None]
  - Anaphylactic shock [None]
  - Leukaemia recurrent [None]
